FAERS Safety Report 23066543 (Version 1)
Quarter: 2023Q4

REPORT INFORMATION
  Report Type: Spontaneous
  Country: ZA (occurrence: ZA)
  Receive Date: 20231015
  Receipt Date: 20231015
  Transmission Date: 20240110
  Serious: Yes (Other)
  Sender: FDA-Public Use
  Company Number: ZA-PFIZER INC-202300320359

PATIENT
  Age: 70 Year
  Sex: Male
  Weight: 65 kg

DRUGS (2)
  1. ENBREL [Suspect]
     Active Substance: ETANERCEPT
     Indication: Product used for unknown indication
     Dosage: UNK
     Route: 065
     Dates: start: 2009
  2. INFLIXIMAB [Concomitant]
     Active Substance: INFLIXIMAB
     Dosage: UNK
     Dates: start: 2007, end: 2009

REACTIONS (4)
  - Opisthotonus [Unknown]
  - Musculoskeletal stiffness [Unknown]
  - Joint instability [Unknown]
  - Blood pressure increased [Unknown]
